FAERS Safety Report 8923726 (Version 1)
Quarter: 2012Q4

REPORT INFORMATION
  Report Type: 
  Country: US (occurrence: US)
  Receive Date: 20121126
  Receipt Date: 20121126
  Transmission Date: 20130627
  Serious: Yes (Hospitalization)
  Sender: FDA-Public Use
  Company Number: US-BAYER-2012-121855

PATIENT
  Age: 38 Year
  Sex: Female
  Weight: 129 kg

DRUGS (4)
  1. YASMIN [Suspect]
  2. ALDACTONE [Concomitant]
     Indication: EDEMA OF LEGS
     Dosage: 25 mg, UNK
     Route: 048
     Dates: start: 20081002
  3. SEASONIQUE [Concomitant]
     Dosage: UNK
     Dates: start: 20081002
  4. LOPRESSOR [Concomitant]
     Indication: BLOOD PRESSURE MANAGEMENT

REACTIONS (2)
  - Pulmonary embolism [None]
  - Off label use [None]
